FAERS Safety Report 5233685-0 (Version None)
Quarter: 2007Q1

REPORT INFORMATION
  Report Type: 
  Country: None (occurrence: None)
  Receive Date: 20061208
  Receipt Date: 20060321
  Transmission Date: 20070707
  Serious: Yes (Other)
  Sender: FDA-Public Use
  Company Number: 2006UW04854

PATIENT
  Age: 81 Year
  Sex: Male
  Weight: 113.39 kg

DRUGS (3)
  1. CRESTOR [Suspect]
     Indication: ARTERIAL OCCLUSIVE DISEASE
     Dosage: 20 MG PO
     Route: 048
  2. CRESTOR [Suspect]
     Indication: OEDEMA PERIPHERAL
     Dosage: 20 MG PO
     Route: 048
  3. PLAVIX [Concomitant]

REACTIONS (2)
  - HYPERHIDROSIS [None]
  - NAUSEA [None]
